FAERS Safety Report 5059717-0 (Version None)
Quarter: 2006Q3

REPORT INFORMATION
  Report Type: 
  Country: None (occurrence: None)
  Receive Date: 20060718
  Receipt Date: 20060711
  Transmission Date: 20061208
  Serious: Yes (Hospitalization)
  Sender: FDA-Public Use
  Company Number: 200610900BVD

PATIENT
  Age: 64 Year
  Sex: Male
  Weight: 88.9 kg

DRUGS (7)
  1. SORAFENIB [Suspect]
     Indication: RENAL CELL CARCINOMA STAGE UNSPECIFIED
     Dosage: 400 MG, BID, ORAL
     Route: 048
     Dates: start: 20060616, end: 20060705
  2. IBUPROFEN [Concomitant]
  3. NITRENDIPIN [Concomitant]
  4. DOSS [ALFACALCIDOL] [Concomitant]
  5. BONDRONAT [IBANDRONATE SODIUM] [Concomitant]
  6. HYDROCORTISON [Concomitant]
  7. OMEP [Concomitant]

REACTIONS (3)
  - BRAIN OEDEMA [None]
  - CENTRAL NERVOUS SYSTEM NECROSIS [None]
  - GRAND MAL CONVULSION [None]
